FAERS Safety Report 4524005-5 (Version None)
Quarter: 2004Q4

REPORT INFORMATION
  Report Type: 
  Country: None (occurrence: None)
  Receive Date: 20041209
  Receipt Date: 20041129
  Transmission Date: 20050328
  Serious: Yes (Death, Hospitalization)
  Sender: FDA-Public Use
  Company Number: F01200403801

PATIENT
  Age: 61 Year
  Sex: Male

DRUGS (7)
  1. OXALIPLATIN - SOLUTION - 130 MG/M2 [Suspect]
     Indication: COLON CANCER
     Dosage: 235 MG Q3W INTRAVENOUS NOS
     Route: 042
  2. CAPECITABINE - TABLET - 1800 MG [Suspect]
     Dosage: 1800 MG TWICE A DAY PER ORAL FROM D1 TO D15, Q3W ORAL
     Route: 048
  3. GRANISETRON [Concomitant]
  4. DEXAMETHASONE [Concomitant]
  5. METFORMIN HCL [Concomitant]
  6. CANDESARTAN [Concomitant]
  7. ATENOLOL [Concomitant]

REACTIONS (7)
  - ASTHENIA [None]
  - HAEMOGLOBIN DECREASED [None]
  - HYPOVOLAEMIC SHOCK [None]
  - LEUKOPENIA [None]
  - NAUSEA [None]
  - THROMBOCYTOPENIA [None]
  - VOMITING [None]
